FAERS Safety Report 5248468-5 (Version None)
Quarter: 2007Q1

REPORT INFORMATION
  Report Type: 
  Country: None (occurrence: None)
  Receive Date: 20070227
  Receipt Date: 20070213
  Transmission Date: 20070707
  Serious: Yes (Death, Hospitalization, Other)
  Sender: FDA-Public Use
  Company Number: US-PFIZER INC-2006055762

PATIENT
  Sex: Female
  Weight: 72.6 kg

DRUGS (1)
  1. BEXTRA [Suspect]
     Indication: SPINAL FRACTURE

REACTIONS (1)
  - PULMONARY EMBOLISM [None]
